FAERS Safety Report 9870012 (Version 1)
Quarter: 2014Q1

REPORT INFORMATION
  Report Type: Spontaneous
  Country: US (occurrence: US)
  Receive Date: 20140205
  Receipt Date: 20140205
  Transmission Date: 20141002
  Serious: No
  Sender: FDA-Public Use
  Company Number: US-GLAXOSMITHKLINE-A1025869A

PATIENT
  Sex: Female
  Weight: 38.6 kg

DRUGS (3)
  1. VALACYCLOVIR [Suspect]
     Indication: HERPES ZOSTER
     Dosage: 1G PER DAY
     Route: 065
  2. CELEBREX [Suspect]
     Indication: PRODUCT USED FOR UNKNOWN INDICATION
     Route: 065
  3. PREMPRO [Concomitant]
     Indication: MENOPAUSE

REACTIONS (9)
  - Drug ineffective [Unknown]
  - Herpes zoster [Unknown]
  - Insomnia [Unknown]
  - Thyroid disorder [Unknown]
  - Migraine [Unknown]
  - Oedema [Unknown]
  - Tendon disorder [Unknown]
  - Hypertension [Unknown]
  - Skin ulcer [Unknown]
